FAERS Safety Report 10390516 (Version 2)
Quarter: 2014Q3

REPORT INFORMATION
  Report Type: Spontaneous
  Country: US (occurrence: US)
  Receive Date: 20140818
  Receipt Date: 20140902
  Transmission Date: 20150326
  Serious: No
  Sender: FDA-Public Use
  Company Number: US-009507513-1408USA006238

PATIENT
  Sex: Female

DRUGS (2)
  1. HEXADROL [Suspect]
     Active Substance: DEXAMETHASONE
     Indication: ANTINUCLEAR ANTIBODY
     Route: 048
  2. HEXADROL [Suspect]
     Active Substance: DEXAMETHASONE
     Indication: ANTINUCLEAR ANTIBODY

REACTIONS (1)
  - Exposure during pregnancy [Recovered/Resolved]
